FAERS Safety Report 26079985 (Version 1)
Quarter: 2025Q4

REPORT INFORMATION
  Report Type: Spontaneous
  Country: MX (occurrence: MX)
  Receive Date: 20251124
  Receipt Date: 20251124
  Transmission Date: 20260118
  Serious: Yes (Death, Other)
  Sender: BAXTER
  Company Number: MX-BAXTER-2025BAX024484

PATIENT
  Age: 37 Year
  Sex: Male

DRUGS (1)
  1. SEVOFLURANE [Suspect]
     Active Substance: SEVOFLURANE
     Indication: Anaesthesia
     Dosage: UNK
     Route: 065

REACTIONS (6)
  - Cardiac arrest [Fatal]
  - Hyperthermia malignant [Unknown]
  - Pyrexia [Unknown]
  - Hyperkalaemia [Unknown]
  - Carbon dioxide increased [Unknown]
  - Muscle hypertrophy [Unknown]
